FAERS Safety Report 23867780 (Version 1)
Quarter: 2024Q2

REPORT INFORMATION
  Report Type: Spontaneous
  Country: US (occurrence: US)
  Receive Date: 20240517
  Receipt Date: 20240517
  Transmission Date: 20240716
  Serious: Yes (Death, Life-Threatening, Other)
  Sender: FDA-Public Use
  Company Number: US-FreseniusKabi-FK202407546

PATIENT
  Sex: Female

DRUGS (1)
  1. FLUOROURACIL [Suspect]
     Active Substance: FLUOROURACIL
     Indication: Product used for unknown indication
     Dosage: FORM OF ADMIN: INJECTION VIA PORT

REACTIONS (4)
  - Death [Fatal]
  - Labelled drug-genetic interaction medication error [Unknown]
  - Contraindicated product administered [Unknown]
  - Unmasking of previously unidentified disease [Unknown]

NARRATIVE: CASE EVENT DATE: 20140101
